FAERS Safety Report 19673783 (Version 1)
Quarter: 2021Q3

REPORT INFORMATION
  Report Type: Spontaneous
  Country: US (occurrence: US)
  Receive Date: 20210808
  Receipt Date: 20210808
  Transmission Date: 20211014
  Serious: Yes (Hospitalization)
  Sender: FDA-Public Use
  Company Number: None

PATIENT
  Age: 63 Year
  Sex: Female
  Weight: 63.9 kg

DRUGS (11)
  1. ACETAMINOPHEN. [Concomitant]
     Active Substance: ACETAMINOPHEN
  2. BENEFIBER [Concomitant]
     Active Substance: STARCH, WHEAT
  3. DOXYCYCLINE. [Suspect]
     Active Substance: DOXYCYCLINE
     Indication: PNEUMONIA
     Dates: start: 20210802, end: 20210806
  4. VITAMIN D [Concomitant]
     Active Substance: VITAMIN D NOS
  5. DUCOSATE SODIUM [Concomitant]
  6. TURMERIC CURCUMIN [Concomitant]
     Active Substance: HERBALS\TURMERIC
  7. SENTRY MULTIVITAMIN [Concomitant]
  8. ATIVAN [Concomitant]
     Active Substance: LORAZEPAM
  9. SIMETHICONE (DIMETHICONE) [Concomitant]
     Active Substance: DIMETHICONE
  10. FORTIFY PROBIOTIC [Concomitant]
  11. BUSPIRONE [Concomitant]
     Active Substance: BUSPIRONE HYDROCHLORIDE

REACTIONS (1)
  - Pancreatitis acute [None]

NARRATIVE: CASE EVENT DATE: 20210806
